FAERS Safety Report 19067392 (Version 3)
Quarter: 2021Q2

REPORT INFORMATION
  Report Type: Spontaneous
  Country: JP (occurrence: JP)
  Receive Date: 20210329
  Receipt Date: 20210526
  Transmission Date: 20210717
  Serious: Yes (Other)
  Sender: FDA-Public Use
  Company Number: NVSJ2021JP004532

PATIENT
  Age: 75 Year
  Sex: Male

DRUGS (6)
  1. EQUMET [Suspect]
     Active Substance: METFORMIN HYDROCHLORIDE\VILDAGLIPTIN
     Dosage: 2 DF,1DF? METFORMIN HYDROCHLORIDE500MG ,VILDAGLIPTIN50MG, QD
     Route: 048
     Dates: start: 20200710, end: 20210310
  2. RYZODEG 70/30 [Concomitant]
     Active Substance: INSULIN ASPART\INSULIN DEGLUDEC
     Indication: TYPE 2 DIABETES MELLITUS
     Dosage: 10 U, BID
     Route: 058
     Dates: start: 20200710
  3. ATORVASTATIN [Suspect]
     Active Substance: ATORVASTATIN
     Indication: DYSLIPIDAEMIA
     Dosage: 5 MG, QD
     Route: 048
     Dates: start: 20200710
  4. EQUMET [Suspect]
     Active Substance: METFORMIN HYDROCHLORIDE\VILDAGLIPTIN
     Indication: TYPE 2 DIABETES MELLITUS
     Dosage: 2 DF,1DF? METFORMIN HYDROCHLORIDE500MG ,VILDAGLIPTIN50MG
     Route: 048
     Dates: start: 201911
  5. SUREPOST [Suspect]
     Active Substance: REPAGLINIDE
     Indication: TYPE 2 DIABETES MELLITUS
     Dosage: 1.5 MG
     Route: 048
  6. SUREPOST [Suspect]
     Active Substance: REPAGLINIDE
     Dosage: 0.5 MG, QD
     Route: 048
     Dates: start: 20200710

REACTIONS (4)
  - Blister [Unknown]
  - Pemphigoid [Not Recovered/Not Resolved]
  - Rash [Not Recovered/Not Resolved]
  - Pruritus [Unknown]

NARRATIVE: CASE EVENT DATE: 202101
